FAERS Safety Report 9169029 (Version 1)
Quarter: 2013Q1

REPORT INFORMATION
  Report Type: Spontaneous
  Country: US (occurrence: None)
  Receive Date: 20130307
  Receipt Date: 20130307
  Transmission Date: 20140127
  Serious: Yes (Disabling, Other)
  Sender: FDA-Public Use
  Company Number: ACO_34613_2013

PATIENT
  Age: 61 Year
  Sex: Male
  Weight: 99.8 kg

DRUGS (15)
  1. AMPYRA (DALFAMPRIDINE) TABLET, 10 MG [Suspect]
     Indication: MULTIPLE SCLEROSIS
     Route: 048
     Dates: start: 201208
  2. TAMSULOSIN HYDROCHLORIDE [Concomitant]
  3. WARFARI [Concomitant]
  4. BACLOFEN [Concomitant]
  5. CITALOPRAM [Concomitant]
  6. ATORVASTATIN [Concomitant]
  7. PROVIGIL [Concomitant]
  8. GILENYA [Concomitant]
  9. MULTIVITAMIN [Concomitant]
  10. STOOL SOFTENER [Concomitant]
  11. OMEGA 3 6 9 [Concomitant]
  12. VITAMIN B COMPLEX [Concomitant]
  13. OPTIMAG [Concomitant]
  14. FLUOXETINE HCL [Concomitant]
  15. CRESTOR [Concomitant]

REACTIONS (4)
  - Urinary retention [None]
  - Pyrexia [None]
  - Urine abnormality [None]
  - Muscular weakness [None]
